FAERS Safety Report 10830621 (Version 5)
Quarter: 2015Q2

REPORT INFORMATION
  Report Type: Report from Study
  Country: US (occurrence: US)
  Receive Date: 20150219
  Receipt Date: 20150422
  Transmission Date: 20150821
  Serious: Yes (Hospitalization)
  Sender: FDA-Public Use
  Company Number: US-SA-2014SA173393

PATIENT
  Age: 46 Year
  Sex: Female
  Weight: 98.88 kg

DRUGS (4)
  1. AUBAGIO [Suspect]
     Active Substance: TERIFLUNOMIDE
     Indication: MULTIPLE SCLEROSIS
     Route: 048
     Dates: start: 20141205, end: 20150204
  2. AUBAGIO [Suspect]
     Active Substance: TERIFLUNOMIDE
     Indication: RELAPSING-REMITTING MULTIPLE SCLEROSIS
     Route: 048
     Dates: start: 20141205, end: 20150204
  3. ADDERALL [Concomitant]
     Active Substance: AMPHETAMINE ASPARTATE\AMPHETAMINE SULFATE\DEXTROAMPHETAMINE SACCHARATE\DEXTROAMPHETAMINE SULFATE
  4. TECFIDERA [Concomitant]
     Active Substance: DIMETHYL FUMARATE
     Dates: start: 20130101, end: 20141202

REACTIONS (19)
  - Cough [Not Recovered/Not Resolved]
  - Vision blurred [Unknown]
  - Wheezing [Not Recovered/Not Resolved]
  - Stomatitis [Unknown]
  - Contusion [Unknown]
  - Abnormal behaviour [Unknown]
  - Paraesthesia [Unknown]
  - Bronchitis [Unknown]
  - Skin exfoliation [Unknown]
  - Dyspnoea [Unknown]
  - Infection [Unknown]
  - Respiratory distress [Not Recovered/Not Resolved]
  - Respiratory failure [Not Recovered/Not Resolved]
  - Dyspnoea [Not Recovered/Not Resolved]
  - Dysgeusia [Unknown]
  - Oral mucosal blistering [Unknown]
  - Tachycardia [Unknown]
  - Hypoaesthesia oral [Unknown]
  - Hypertension [Unknown]

NARRATIVE: CASE EVENT DATE: 201412
